FAERS Safety Report 25871372 (Version 1)
Quarter: 2025Q4

REPORT INFORMATION
  Report Type: Spontaneous
  Country: EU (occurrence: EU)
  Receive Date: 20251001
  Receipt Date: 20251001
  Transmission Date: 20260118
  Serious: Yes (Hospitalization)
  Sender: PFIZER
  Company Number: None

PATIENT
  Age: 63 Year
  Sex: Female

DRUGS (2)
  1. CYTARABINE [Suspect]
     Active Substance: CYTARABINE
     Indication: Acute myeloid leukaemia
     Dosage: 320 MG, 1X/DAY
     Route: 042
     Dates: start: 20250704, end: 20250709
  2. DAUNORUBICIN HYDROCHLORIDE [Suspect]
     Active Substance: DAUNORUBICIN HYDROCHLORIDE
     Indication: Acute myeloid leukaemia
     Dosage: 96 MG, 1X/DAY
     Route: 042
     Dates: start: 20250704, end: 20250706

REACTIONS (1)
  - Chronic pigmented purpura [Recovered/Resolved]

NARRATIVE: CASE EVENT DATE: 20250709
